APPROVED DRUG PRODUCT: TICAR
Active Ingredient: TICARCILLIN DISODIUM
Strength: EQ 30GM BASE/VIAL
Dosage Form/Route: INJECTABLE;INJECTION
Application: N050497 | Product #005
Applicant: GLAXOSMITHKLINE
Approved: Apr 4, 1984 | RLD: No | RS: No | Type: DISCN